FAERS Safety Report 6302178-1 (Version None)
Quarter: 2009Q3

REPORT INFORMATION
  Report Type: 
  Country: None (occurrence: None)
  Receive Date: 20090810
  Receipt Date: 20070914
  Transmission Date: 20100115
  Serious: Yes (Other)
  Sender: FDA-Public Use
  Company Number: US-ASTRAZENECA-2006UW22265

PATIENT
  Age: 15612 Day
  Sex: Female
  Weight: 98.9 kg

DRUGS (10)
  1. SEROQUEL [Suspect]
     Indication: NERVOUSNESS
     Dosage: 25-50 MG
     Route: 048
     Dates: start: 20040227
  2. SEROQUEL [Suspect]
     Route: 048
     Dates: start: 20050401
  3. HALDOL [Concomitant]
  4. RISPERDAL [Concomitant]
  5. ZYPREXA [Concomitant]
  6. PAXIL [Concomitant]
     Dosage: 25-50 MG
     Dates: start: 20031024
  7. WELLBUTRIN [Concomitant]
     Route: 048
     Dates: start: 20040312
  8. MOTRIN [Concomitant]
     Route: 048
     Dates: start: 20040312
  9. COGENTIN [Concomitant]
     Route: 048
     Dates: start: 20040312
  10. HADOL DECANOATE [Concomitant]
     Dosage: 100-150 MG
     Route: 048
     Dates: start: 20040312

REACTIONS (2)
  - DIABETES MELLITUS [None]
  - DIABETIC GASTROPARESIS [None]
